FAERS Safety Report 13128030 (Version 1)
Quarter: 2017Q1

REPORT INFORMATION
  Report Type: Spontaneous
  Country: JP (occurrence: JP)
  Receive Date: 20170118
  Receipt Date: 20170118
  Transmission Date: 20170428
  Serious: Yes (Death)
  Sender: FDA-Public Use
  Company Number: JP-BAYER-2016-074118

PATIENT
  Age: 65 Year
  Sex: Male

DRUGS (1)
  1. BAYASPIRIN [Suspect]
     Active Substance: ASPIRIN
     Dosage: UNK
     Route: 048
     Dates: start: 200801, end: 201411

REACTIONS (3)
  - Sepsis [Fatal]
  - Pneumonia [Fatal]
  - Cerebral haemorrhage [Fatal]
